FAERS Safety Report 12064917 (Version 1)
Quarter: 2016Q1

REPORT INFORMATION
  Report Type: Spontaneous
  Country: US (occurrence: US)
  Receive Date: 20160210
  Receipt Date: 20160210
  Transmission Date: 20160526
  Serious: No
  Sender: FDA-Public Use
  Company Number: US-ALLERGAN-1517554US

PATIENT
  Age: 54 Year
  Sex: Male

DRUGS (5)
  1. LIDOCAINE HYDROCHLORIDE AND EPINEPHRINE [Concomitant]
     Active Substance: EPINEPHRINE\EPINEPHRINE BITARTRATE\LIDOCAINE HYDROCHLORIDE\LIDOCAINE HYDROCHLORIDE ANHYDROUS
     Dosage: 6 ML, SINGLE
     Dates: start: 20150825, end: 20150825
  2. CLONAZEPAM. [Concomitant]
     Active Substance: CLONAZEPAM
     Indication: TEMPOROMANDIBULAR JOINT SYNDROME
     Dosage: UNK
     Route: 048
  3. BOTOX [Suspect]
     Active Substance: ONABOTULINUMTOXINA
     Indication: TEMPOROMANDIBULAR JOINT SYNDROME
     Dosage: 100 UNITS, SINGLE
     Route: 030
     Dates: start: 20150825, end: 20150825
  4. BOTOX [Suspect]
     Active Substance: ONABOTULINUMTOXINA
     Indication: MUSCLE TIGHTNESS
  5. KENALOG [Concomitant]
     Active Substance: TRIAMCINOLONE ACETONIDE
     Dosage: 2 MG, SINGLE
     Dates: start: 20150825, end: 20150825

REACTIONS (12)
  - Corneal reflex decreased [Recovered/Resolved]
  - Influenza like illness [Recovered/Resolved]
  - Lymphadenopathy [Recovered/Resolved]
  - Off label use [Unknown]
  - Tinnitus [Not Recovered/Not Resolved]
  - Pyrexia [Recovered/Resolved]
  - Lyme disease [Recovered/Resolved]
  - Chest discomfort [Recovered/Resolved]
  - Bruxism [Not Recovered/Not Resolved]
  - Ear pain [Not Recovered/Not Resolved]
  - Dizziness [Not Recovered/Not Resolved]
  - Nausea [Not Recovered/Not Resolved]

NARRATIVE: CASE EVENT DATE: 201508
